FAERS Safety Report 11292206 (Version 1)
Quarter: 2015Q3

REPORT INFORMATION
  Report Type: Spontaneous
  Country: US (occurrence: None)
  Receive Date: 20150721
  Receipt Date: 20150721
  Transmission Date: 20151125
  Serious: No
  Sender: FDA-Public Use
  Company Number: None

PATIENT
  Age: 64 Year
  Sex: Female
  Weight: 83.92 kg

DRUGS (18)
  1. LEVOFLOXACIN 500 MG [Suspect]
     Active Substance: LEVOFLOXACIN
     Indication: PNEUMONIA
     Route: 048
     Dates: start: 20150710, end: 20150719
  2. SYMBICORT [Concomitant]
     Active Substance: BUDESONIDE\FORMOTEROL FUMARATE DIHYDRATE
  3. GABAPENTIN. [Concomitant]
     Active Substance: GABAPENTIN
  4. TRIAMTERENE-HCTZ [Concomitant]
     Active Substance: HYDROCHLOROTHIAZIDE\TRIAMTERENE
  5. LEVOFLOXACIN 500 MG [Suspect]
     Active Substance: LEVOFLOXACIN
     Indication: PHARYNGITIS
     Route: 048
     Dates: start: 20150710, end: 20150719
  6. LEVOFLOXACIN 500 MG [Suspect]
     Active Substance: LEVOFLOXACIN
     Indication: LARYNGITIS
     Route: 048
     Dates: start: 20150710, end: 20150719
  7. FLUTICASONE PROPIONATE. [Concomitant]
     Active Substance: FLUTICASONE PROPIONATE
  8. OMEGA 3 [Concomitant]
     Active Substance: OMEGA-3 FATTY ACIDS
  9. BABY ASPIRIN [Concomitant]
     Active Substance: ASPIRIN
  10. LEVOFLOXACIN 500 MG [Suspect]
     Active Substance: LEVOFLOXACIN
     Indication: BRONCHITIS
     Route: 048
     Dates: start: 20150710, end: 20150719
  11. ATENOLOL. [Concomitant]
     Active Substance: ATENOLOL
  12. NORTRIPTYLINE HCL [Concomitant]
     Active Substance: NORTRIPTYLINE HYDROCHLORIDE
  13. ALPRAZOLAM. [Concomitant]
     Active Substance: ALPRAZOLAM
  14. MULTIVITAMIN [Concomitant]
     Active Substance: VITAMINS
  15. VITAMIN D [Concomitant]
     Active Substance: CHOLECALCIFEROL
  16. VITAMIN B12 [Concomitant]
     Active Substance: CYANOCOBALAMIN
  17. ZYRTEC [Concomitant]
     Active Substance: CETIRIZINE HYDROCHLORIDE
  18. ALBUTEROL INHALER [Concomitant]
     Active Substance: ALBUTEROL

REACTIONS (3)
  - Weight bearing difficulty [None]
  - Tendonitis [None]
  - Bursitis [None]

NARRATIVE: CASE EVENT DATE: 20150715
